FAERS Safety Report 18781244 (Version 1)
Quarter: 2021Q1

REPORT INFORMATION
  Report Type: Spontaneous
  Country: US (occurrence: US)
  Receive Date: 20210124
  Receipt Date: 20210124
  Transmission Date: 20210419
  Serious: Yes (Other)
  Sender: FDA-Public Use
  Company Number: None

PATIENT
  Age: 38 Year
  Sex: Male
  Weight: 87.75 kg

DRUGS (4)
  1. VITAMIN D3 [Concomitant]
     Active Substance: CHOLECALCIFEROL
  2. BUPROPION HYDROCHLORIDE XL [Suspect]
     Active Substance: BUPROPION HYDROCHLORIDE
     Indication: DEPRESSION
     Dosage: ?          QUANTITY:1 TABLET(S);?
     Route: 048
  3. FISH OIL [Concomitant]
     Active Substance: FISH OIL
  4. BUPROPION XL [Concomitant]
     Active Substance: BUPROPION

REACTIONS (9)
  - Dystonia [None]
  - Product supply issue [None]
  - Product substitution issue [None]
  - Product quality issue [None]
  - Headache [None]
  - Nausea [None]
  - Symptom recurrence [None]
  - Manufacturing materials issue [None]
  - Depression [None]

NARRATIVE: CASE EVENT DATE: 20210101
